FAERS Safety Report 10009109 (Version 2)
Quarter: 2014Q1

REPORT INFORMATION
  Report Type: Spontaneous
  Country: US (occurrence: US)
  Receive Date: 20140313
  Receipt Date: 20140313
  Transmission Date: 20141002
  Serious: No
  Sender: FDA-Public Use
  Company Number: US-GILEAD-2012-0057165

PATIENT
  Sex: Female

DRUGS (4)
  1. LETAIRIS [Suspect]
     Indication: PULMONARY HYPERTENSION
     Dosage: 10 MG, UNK
     Route: 048
     Dates: start: 20110926
  2. LETAIRIS [Suspect]
     Indication: SLEEP APNOEA SYNDROME
  3. LETAIRIS [Suspect]
     Indication: OBESITY
  4. LETAIRIS [Suspect]
     Indication: DIASTOLIC DYSFUNCTION

REACTIONS (5)
  - Malaise [Unknown]
  - Anxiety [Unknown]
  - Nervousness [Unknown]
  - Fatigue [Unknown]
  - Anaemia [Unknown]
